FAERS Safety Report 8020273-6 (Version None)
Quarter: 2012Q1

REPORT INFORMATION
  Report Type: 
  Country: None (occurrence: None)
  Receive Date: 20120103
  Receipt Date: 20111222
  Transmission Date: 20120608
  Serious: Yes (Hospitalization, Other)
  Sender: FDA-Public Use
  Company Number: US-CELGENEUS-163-20785-11081506

PATIENT
  Sex: Female

DRUGS (17)
  1. NITRO-DUR [Concomitant]
     Dosage: 0.4MG/HOUR
     Route: 065
     Dates: start: 20080418
  2. PRILOSEC [Concomitant]
     Dosage: 20 MILLIGRAM
     Route: 065
     Dates: start: 20110225
  3. NORCO [Concomitant]
     Dosage: 5-325MG
     Route: 065
     Dates: start: 20110825
  4. PROVERA [Concomitant]
     Dosage: 10 MILLIGRAM
     Route: 065
     Dates: start: 20110824
  5. AMARYL [Concomitant]
     Dosage: 4 MILLIGRAM
     Route: 065
     Dates: start: 20110922
  6. LASIX [Concomitant]
     Dosage: 40 MILLIGRAM
     Route: 065
     Dates: start: 20110824
  7. AMBIEN [Concomitant]
     Dosage: 10 MILLIGRAM
     Route: 065
     Dates: start: 20110922
  8. ZOFRAN [Concomitant]
     Dosage: 8 MILLIGRAM
     Route: 065
     Dates: start: 20070501
  9. THALOMID [Suspect]
     Dosage: 100 MILLIGRAM
     Route: 048
     Dates: start: 20110801
  10. THALOMID [Suspect]
     Dosage: 100 MILLIGRAM
     Route: 048
     Dates: start: 20090701
  11. DIAZEPAM [Concomitant]
     Dosage: 2 MILLIGRAM
     Route: 065
     Dates: start: 20100427
  12. VITAMIN D [Concomitant]
     Dosage: 5000 UNITS
     Route: 065
     Dates: start: 20110825
  13. CYKLOKAPRON [Concomitant]
     Dosage: 100 MILLIGRAM/MILLILITERS
     Route: 065
     Dates: start: 20110824
  14. METOPROLOL SUCCINATE [Concomitant]
     Dosage: 25 MILLIGRAM
     Route: 065
     Dates: start: 20110524
  15. LANTUS [Concomitant]
     Dosage: 50 UNITS
     Route: 065
     Dates: start: 20091007
  16. MEPHYTON [Concomitant]
     Dosage: 10 MILLIGRAM
     Route: 065
     Dates: start: 20090915
  17. THALOMID [Suspect]
     Dosage: 100 MILLIGRAM
     Route: 048
     Dates: start: 20060201

REACTIONS (2)
  - HEREDITARY HAEMORRHAGIC TELANGIECTASIA [None]
  - OSTEOARTHRITIS [None]
